FAERS Safety Report 6755330-5 (Version None)
Quarter: 2010Q2

REPORT INFORMATION
  Report Type: 
  Country: None (occurrence: None)
  Receive Date: 20100604
  Receipt Date: 20100527
  Transmission Date: 20101027
  Serious: Yes (Other)
  Sender: FDA-Public Use
  Company Number: US-JNJFOC-20100600014

PATIENT
  Sex: Female
  Weight: 83.92 kg

DRUGS (3)
  1. DURAGESIC-100 [Suspect]
     Indication: PAIN
     Route: 062
     Dates: start: 20080101
  2. SOMA [Concomitant]
     Indication: PAIN
     Route: 048
  3. LORTAB [Concomitant]
     Indication: PAIN
     Route: 048

REACTIONS (5)
  - ARTHROPATHY [None]
  - HEMIPARESIS [None]
  - JOINT SWELLING [None]
  - PAIN [None]
  - PRODUCT QUALITY ISSUE [None]
